FAERS Safety Report 20761242 (Version 1)
Quarter: 2022Q2

REPORT INFORMATION
  Report Type: Spontaneous
  Country: KZ (occurrence: KZ)
  Receive Date: 20220428
  Receipt Date: 20220428
  Transmission Date: 20220720
  Serious: Yes (Life-Threatening)
  Sender: FDA-Public Use
  Company Number: KZ-TEVA-2022-KZ-2032218

PATIENT
  Age: 9 Year
  Sex: Male

DRUGS (2)
  1. CARBAMAZEPINE [Suspect]
     Active Substance: CARBAMAZEPINE
     Indication: Generalised tonic-clonic seizure
     Route: 048
     Dates: start: 20220314, end: 20220314
  2. CARBAMAZEPINE [Suspect]
     Active Substance: CARBAMAZEPINE
     Indication: Partial seizures

REACTIONS (2)
  - Dermatitis allergic [Not Recovered/Not Resolved]
  - Epilepsy [Not Recovered/Not Resolved]
